FAERS Safety Report 21974342 (Version 1)
Quarter: 2023Q1

REPORT INFORMATION
  Report Type: Spontaneous
  Country: US (occurrence: None)
  Receive Date: 20230208
  Receipt Date: 20230208
  Transmission Date: 20230417
  Serious: Yes (Life-Threatening, Hospitalization, Disabling)
  Sender: FDA-Public Use
  Company Number: None

PATIENT
  Age: 47 Year
  Sex: Female
  Weight: 72 kg

DRUGS (1)
  1. KLONOPIN [Suspect]
     Active Substance: CLONAZEPAM
     Indication: Product used for unknown indication
     Dates: start: 20120912, end: 20211031

REACTIONS (6)
  - Therapy cessation [None]
  - Drug withdrawal convulsions [None]
  - Migraine [None]
  - Hallucination [None]
  - Impaired work ability [None]
  - Disability [None]

NARRATIVE: CASE EVENT DATE: 20211024
